FAERS Safety Report 15214941 (Version 1)
Quarter: 2018Q3

REPORT INFORMATION
  Report Type: Spontaneous
  Country: US (occurrence: US)
  Receive Date: 20180730
  Receipt Date: 20180730
  Transmission Date: 20181010
  Serious: No
  Sender: FDA-Public Use
  Company Number: US-ELI_LILLY_AND_COMPANY-US201807011617

PATIENT
  Age: 51 Year
  Sex: Male

DRUGS (2)
  1. BASAGLAR [Suspect]
     Active Substance: INSULIN GLARGINE
     Indication: TYPE 1 DIABETES MELLITUS
     Dosage: 35 U, UNKNOWN
     Route: 058
     Dates: start: 20180717
  2. NOVOLOG [Concomitant]
     Active Substance: INSULIN ASPART
     Indication: TYPE 1 DIABETES MELLITUS
     Dosage: 10 U, UNK

REACTIONS (2)
  - Incorrect dose administered [Recovered/Resolved]
  - Blood glucose abnormal [Unknown]

NARRATIVE: CASE EVENT DATE: 201807
